FAERS Safety Report 5525175-2 (Version None)
Quarter: 2007Q4

REPORT INFORMATION
  Report Type: 
  Country: None (occurrence: None)
  Receive Date: 20071126
  Receipt Date: 20071115
  Transmission Date: 20080405
  Serious: Yes (Hospitalization)
  Sender: FDA-Public Use
  Company Number: US-NOVOPROD-267000

PATIENT

DRUGS (2)
  1. NOVOLOG [Suspect]
     Indication: TYPE 1 DIABETES MELLITUS
     Dosage: 49.5 IU, QD
     Route: 058
     Dates: start: 20030101, end: 20060921
  2. NOVOLOG [Suspect]
     Dosage: 49.5 IU, QD
     Route: 058
     Dates: start: 20060930

REACTIONS (2)
  - BLOOD GLUCOSE INCREASED [None]
  - CHEST PAIN [None]
